FAERS Safety Report 6370900-4 (Version None)
Quarter: 2009Q3

REPORT INFORMATION
  Report Type: 
  Country: None (occurrence: None)
  Receive Date: 20090923
  Receipt Date: 20071109
  Transmission Date: 20100115
  Serious: Yes (Hospitalization, Other)
  Sender: FDA-Public Use
  Company Number: US-ASTRAZENECA-2006UW22597

PATIENT
  Age: 32 Year
  Sex: Male
  Weight: 170.1 kg

DRUGS (34)
  1. SEROQUEL [Suspect]
     Indication: BIPOLAR DISORDER
     Dosage: 50 MG TO 600 MG
     Route: 048
     Dates: start: 20010201
  2. SEROQUEL [Suspect]
     Dosage: 25MG-100MG DAILY
     Route: 048
     Dates: start: 20010307, end: 20030329
  3. SEROQUEL [Suspect]
     Dosage: 200 - 600 MG AT BED TIME
     Route: 048
     Dates: start: 20050911
  4. TRILEPTAL [Concomitant]
     Dosage: 900 MG - 1200 MG DAILY
     Route: 048
  5. NEURONTIN [Concomitant]
     Route: 048
  6. MICARDIS [Concomitant]
     Route: 048
  7. AVANDAMET [Concomitant]
     Dosage: 2 MG(ROSIGLITAZONE MALEATE) AND 1000 MG (METFORMIN HCL)
     Route: 048
  8. KOLONOPIN [Concomitant]
     Dosage: 1 MG - 3 MG AT BED TIME
     Route: 048
  9. ARICEPT [Concomitant]
     Route: 048
  10. LITHIUM [Concomitant]
     Dosage: 900 MG EVERY MORNING AND 900 MG AT NIGHT
     Route: 048
  11. DEPAKOTE [Concomitant]
     Dosage: STRENGTH 125 MG, 500 MG, 600 MG
     Route: 048
  12. LIPITOR [Concomitant]
     Route: 048
  13. DIAZEPAM [Concomitant]
     Route: 065
  14. ABILIFY [Concomitant]
     Route: 048
  15. LAMICTAL [Concomitant]
     Route: 065
  16. GLIPIZIDE [Concomitant]
     Route: 065
  17. FUROSEMIDE [Concomitant]
     Route: 065
  18. ATENOLOL [Concomitant]
     Dosage: 25 MG - 50 MG DAILY
     Route: 048
  19. LISINOPRIL [Concomitant]
     Route: 065
  20. LEVOTHYROXINE SODIUM [Concomitant]
     Route: 048
  21. ACETAMINOPHEN AND HYDROCODONE BITARTRATE [Concomitant]
     Dosage: STRENGTH 7.5 MG (HYDROCODONE) AND 75 MG (PARACETAMOL)
     Route: 065
  22. CHANTIX [Concomitant]
     Route: 048
  23. SONATA [Concomitant]
     Route: 048
  24. PROMETHAZINE [Concomitant]
     Route: 048
  25. TOPAMAX [Concomitant]
     Route: 048
  26. AMBIEN [Concomitant]
     Route: 048
  27. ATROVENT [Concomitant]
     Dosage: STRENGTH 0.03%
     Route: 045
  28. FLONASE [Concomitant]
     Dosage: 0.5% STRENGTH
     Route: 045
  29. ACTOS [Concomitant]
     Route: 048
  30. MERIDIA [Concomitant]
     Route: 048
  31. FLEXERIL [Concomitant]
     Route: 048
  32. DIOVAN HCT [Concomitant]
     Dosage: 16 MG (VALSARTAN) AND 12.5 MG (HYDROCHLOROTHIAZIDE)
     Route: 048
  33. PHENTERMINE HYDROCHLORIDE [Concomitant]
     Dosage: 30 MG - 37.5 MG DAILY
     Route: 048
  34. NICOTINE [Concomitant]
     Route: 062

REACTIONS (2)
  - DIABETES MELLITUS [None]
  - PANCREATITIS ACUTE [None]
